FAERS Safety Report 10186062 (Version 2)
Quarter: 2014Q2

REPORT INFORMATION
  Report Type: Spontaneous
  Country: US (occurrence: US)
  Receive Date: 20140521
  Receipt Date: 20140530
  Transmission Date: 20141212
  Serious: Yes (Other)
  Sender: FDA-Public Use
  Company Number: US-PFIZER INC-2014135767

PATIENT
  Age: 72 Year
  Sex: Male
  Weight: 68.03 kg

DRUGS (10)
  1. GABAPENTIN [Suspect]
     Indication: DIABETIC NEUROPATHY
     Dosage: 300MG IN THE MORNING, 300MG AT NOON AND 600MG AT BED TIME
     Route: 048
  2. LEVOTHYROXINE [Concomitant]
     Indication: HYPOTHYROIDISM
     Dosage: 50 UG, DAILY
  3. LEVOTHYROXINE [Concomitant]
     Dosage: 150 UG, DAILY
  4. GLIMEPIRIDE [Concomitant]
     Indication: DIABETES MELLITUS
     Dosage: 5 MG, DAILY
  5. GLIMEPIRIDE [Concomitant]
     Dosage: 1 MG, DAILY
  6. ATENOLOL [Concomitant]
     Indication: HYPERTENSION
     Dosage: 50 MG, DAILY
  7. ATENOLOL [Concomitant]
     Dosage: 25 MG, DAILY
  8. SIMVASTATIN [Concomitant]
     Dosage: 40 MG, DAILY
  9. AMITRIPTYLINE [Concomitant]
     Indication: DEPRESSION
     Dosage: 100 MG, DAILY AT NIGHT
  10. LORAZEPAM [Concomitant]
     Dosage: UNK, 3X/DAY

REACTIONS (13)
  - Pneumonia [Recovered/Resolved]
  - Tuberculosis [Unknown]
  - Immune system disorder [Unknown]
  - Infection [Unknown]
  - Dizziness [Not Recovered/Not Resolved]
  - Vomiting [Unknown]
  - Eating disorder [Unknown]
  - Decreased appetite [Unknown]
  - Weight decreased [Unknown]
  - Myalgia [Unknown]
  - Insomnia [Unknown]
  - Night sweats [Unknown]
  - Gait disturbance [Unknown]
